FAERS Safety Report 16634765 (Version 4)
Quarter: 2022Q1

REPORT INFORMATION
  Report Type: Spontaneous
  Country: JP (occurrence: JP)
  Receive Date: 20190726
  Receipt Date: 20220318
  Transmission Date: 20220423
  Serious: Yes (Life-Threatening, Hospitalization, Other)
  Sender: FDA-Public Use
  Company Number: JP-KYOWAKIRIN-2019AKK007146

PATIENT
  Age: 70 Year
  Sex: Female

DRUGS (4)
  1. PEGFILGRASTIM [Suspect]
     Active Substance: PEGFILGRASTIM
     Indication: Colony stimulating factor therapy
     Dosage: 3.6 MILLIGRAM
     Route: 058
     Dates: start: 20190412, end: 20190412
  2. EPIRUBICIN [Concomitant]
     Active Substance: EPIRUBICIN
     Indication: HER2 positive breast cancer
     Dosage: 100 MG/M2, 1X/3 WEEKS, 4 CYCLES
     Route: 042
     Dates: start: 20190410, end: 20190410
  3. CYCLOPHOSPHAMIDE [Concomitant]
     Active Substance: CYCLOPHOSPHAMIDE
     Indication: HER2 positive breast cancer
     Dosage: 600 MG/M2, 1X/3 WEEKS, 4 CYCLES
     Route: 042
     Dates: start: 20190410, end: 20190410
  4. LEVOFLOXACIN [Concomitant]
     Active Substance: LEVOFLOXACIN
     Indication: Product used for unknown indication
     Dosage: UNK
     Route: 065
     Dates: start: 20190423

REACTIONS (2)
  - Aortitis [Recovered/Resolved]
  - Aortic dissection [Recovered/Resolved]

NARRATIVE: CASE EVENT DATE: 20190426
